FAERS Safety Report 4675123-2 (Version None)
Quarter: 2005Q2

REPORT INFORMATION
  Report Type: 
  Country: None (occurrence: None)
  Receive Date: 20050526
  Receipt Date: 20050309
  Transmission Date: 20051028
  Serious: Yes (Hospitalization, Disabling, Other)
  Sender: FDA-Public Use
  Company Number: US-MERCK-0503USA01685

PATIENT
  Age: 49 Year
  Sex: Male
  Weight: 89 kg

DRUGS (42)
  1. FAMVIR [Concomitant]
     Route: 065
  2. COZAAR [Concomitant]
     Route: 048
     Dates: start: 20030722
  3. DIATX [Concomitant]
     Route: 065
  4. DURICEF [Concomitant]
     Route: 065
  5. ACETAMINOPHEN AND HYDROCODONE BITARTRATE [Concomitant]
     Route: 065
  6. NEPHRO-VITE RX [Concomitant]
     Route: 065
  7. TEMAZEPAM [Concomitant]
     Route: 065
  8. AMOXICILLIN AND CLAVULANATE POTASSIUM [Concomitant]
     Route: 065
  9. MINOXIDIL 2% [Concomitant]
     Route: 065
  10. METRONIDAZOLE [Concomitant]
     Route: 065
  11. ENDOCET [Concomitant]
     Route: 065
  12. LABETALOL HYDROCHLORIDE [Concomitant]
     Route: 065
  13. VIOXX [Suspect]
     Indication: ARTHRITIS
     Route: 048
     Dates: start: 20030822, end: 20040901
  14. VIOXX [Suspect]
     Indication: ARTHRALGIA
     Route: 048
     Dates: start: 20030822, end: 20040901
  15. PHOSLO [Concomitant]
     Route: 065
  16. PREDNISONE [Concomitant]
     Route: 048
  17. ALLOPURINOL [Concomitant]
     Route: 048
  18. DOCUSATE SODIUM [Concomitant]
     Route: 065
  19. LIPITOR [Concomitant]
     Route: 065
     Dates: start: 20001018, end: 20031015
  20. NORVASC [Concomitant]
     Route: 065
     Dates: start: 20001110, end: 20040704
  21. AVANDIA [Concomitant]
     Route: 065
  22. LOPRESSOR [Concomitant]
     Route: 065
     Dates: start: 20030701
  23. ZOLOFT [Concomitant]
     Indication: ANXIETY
     Route: 065
     Dates: start: 20030503
  24. AMITRIPTYLINE HYDROCHLORIDE [Concomitant]
     Route: 048
  25. ACETAMINOPHEN AND PROPOXYPHENE NAPSYLATE [Concomitant]
     Route: 065
  26. NIFEDIPINE [Concomitant]
     Route: 048
  27. ZITHROMAX [Concomitant]
     Route: 065
  28. CLINDAMYCIN [Concomitant]
     Route: 065
  29. TRIAMCINOLONE ACETONIDE [Concomitant]
     Route: 065
  30. HYDRALAZINE [Concomitant]
     Route: 065
  31. LEVAQUIN [Concomitant]
     Route: 065
  32. CLONIDINE [Concomitant]
     Route: 065
  33. TYLENOL (CAPLET) [Concomitant]
     Route: 065
     Dates: start: 19700101
  34. BEXTRA [Concomitant]
     Route: 065
     Dates: start: 20031224, end: 20040101
  35. CALCITRIOL [Concomitant]
     Route: 065
  36. COLCHICINE [Concomitant]
     Route: 065
  37. METHYLPREDNISOLONE [Concomitant]
     Route: 065
  38. CARBIDOPA AND LEVODOPA [Concomitant]
     Route: 048
  39. HEPARIN [Concomitant]
     Route: 065
     Dates: start: 19900101
  40. ASPIRIN [Concomitant]
     Route: 048
     Dates: start: 19590101
  41. PRAVACHOL [Concomitant]
     Route: 065
  42. DIPHENHYDRAMINE HYDROCHLORIDE [Concomitant]
     Route: 065

REACTIONS (10)
  - ANHEDONIA [None]
  - ARTERIOVENOUS FISTULA THROMBOSIS [None]
  - CARDIAC FAILURE CONGESTIVE [None]
  - FAECES DISCOLOURED [None]
  - HAEMATOCHEZIA [None]
  - HERNIA [None]
  - PAIN [None]
  - PULMONARY INFARCTION [None]
  - RED BLOOD CELL COUNT DECREASED [None]
  - THROMBOSIS [None]
